FAERS Safety Report 18087105 (Version 1)
Quarter: 2020Q3

REPORT INFORMATION
  Report Type: Spontaneous
  Country: US (occurrence: US)
  Receive Date: 20200729
  Receipt Date: 20200729
  Transmission Date: 20201103
  Serious: No
  Sender: FDA-Public Use
  Company Number: None

PATIENT
  Sex: Female

DRUGS (1)
  1. PLEGRIDY [Suspect]
     Active Substance: PEGINTERFERON BETA-1A
     Indication: MULTIPLE SCLEROSIS
     Dosage: ?          OTHER STRENGTH:125MCG/0.5ML;OTHER FREQUENCY:EVERY FOURTEEN DAY;?
     Route: 058
     Dates: start: 20141215

REACTIONS (3)
  - Breast conserving surgery [None]
  - Biopsy lymph gland [None]
  - Breast cancer [None]
